FAERS Safety Report 8419917-6 (Version None)
Quarter: 2012Q2

REPORT INFORMATION
  Report Type: 
  Country: None (occurrence: None)
  Receive Date: 20120607
  Receipt Date: 20120601
  Transmission Date: 20120825
  Serious: Yes (Other)
  Sender: FDA-Public Use
  Company Number: SE-ABBOTT-12P-150-0937173-00

PATIENT
  Age: 26 Year
  Sex: Female

DRUGS (5)
  1. HUMIRA [Suspect]
     Indication: COLITIS ULCERATIVE
     Dosage: 80 MILLIGRAM CYCLIC
     Route: 058
     Dates: start: 20120221, end: 20120306
  2. ENTOCORT EC [Concomitant]
     Indication: PRODUCT USED FOR UNKNOWN INDICATION
  3. REMICADE [Suspect]
     Indication: COLITIS ULCERATIVE
     Dosage: 300 MILLIGRAM AS NEEDED
     Route: 042
     Dates: start: 20111014, end: 20120112
  4. KALCIPOS-D FORTE [Concomitant]
     Indication: PRODUCT USED FOR UNKNOWN INDICATION
  5. PURINETHOL [Concomitant]
     Indication: PRODUCT USED FOR UNKNOWN INDICATION

REACTIONS (4)
  - PSORIASIS [None]
  - ALOPECIA [None]
  - RASH [None]
  - SKIN DISORDER [None]
